FAERS Safety Report 25219905 (Version 1)
Quarter: 2025Q2

REPORT INFORMATION
  Report Type: Spontaneous
  Country: US (occurrence: US)
  Receive Date: 20250421
  Receipt Date: 20250421
  Transmission Date: 20250717
  Serious: No
  Sender: Haleon PLC
  Company Number: US-HALEON-2238422

PATIENT
  Age: 25 Year
  Sex: Female

DRUGS (1)
  1. FLUTICASONE [Suspect]
     Active Substance: FLUTICASONE
     Indication: Lymphocytic oesophagitis
     Route: 055

REACTIONS (1)
  - Drug ineffective [Unknown]
